FAERS Safety Report 8529784-8 (Version None)
Quarter: 2012Q2

REPORT INFORMATION
  Report Type: 
  Country: None (occurrence: None)
  Receive Date: 20120410
  Receipt Date: 20111206
  Transmission Date: 20120825
  Serious: Yes (Hospitalization)
  Sender: FDA-Public Use
  Company Number: AUR-APL-2011-06133

PATIENT
  Age: 69 Year
  Sex: Female

DRUGS (2)
  1. VENOFER [Concomitant]
  2. LISINOPRIL [Suspect]
     Indication: HYPERTENSION

REACTIONS (1)
  - HYPERSENSITIVITY [None]
